FAERS Safety Report 6253885-0 (Version None)
Quarter: 2009Q3

REPORT INFORMATION
  Report Type: 
  Country: None (occurrence: None)
  Receive Date: 20090702
  Receipt Date: 20090622
  Transmission Date: 20100115
  Serious: Yes (Other)
  Sender: FDA-Public Use
  Company Number: PHHY2008VE07554

PATIENT
  Sex: Male

DRUGS (2)
  1. CATAFLAM [Suspect]
     Indication: PAIN
     Dosage: 50 MG
     Route: 048
  2. MOBIC [Concomitant]
     Indication: PAIN
     Dosage: UNK, QD

REACTIONS (3)
  - ARTHRALGIA [None]
  - INSOMNIA [None]
  - MUSCLE SPASMS [None]
